FAERS Safety Report 18899405 (Version 1)
Quarter: 2021Q1

REPORT INFORMATION
  Report Type: Spontaneous
  Country: GB (occurrence: GB)
  Receive Date: 20210216
  Receipt Date: 20210216
  Transmission Date: 20210420
  Serious: Yes (Other)
  Sender: FDA-Public Use
  Company Number: GB-MYLANLABS-2018M1096137

PATIENT
  Age: 22 Year
  Sex: Male
  Weight: 74.2 kg

DRUGS (5)
  1. DESLORATADINE. [Suspect]
     Active Substance: DESLORATADINE
     Indication: PRODUCT USED FOR UNKNOWN INDICATION
     Dosage: UNK
     Route: 048
  2. MOMETASONE [Concomitant]
     Active Substance: MOMETASONE
     Dosage: 1 OR 2 SPRAYS IN EACH NOSTRIL DAILY
     Dates: start: 20180314
  3. LAXIDO [Concomitant]
     Active Substance: POLYETHYLENE GLYCOL 3350\POTASSIUM CHLORIDE\SODIUM BICARBONATE\SODIUM CHLORIDE
     Dosage: 1 DOSAGE FORM, QD (USE ONE SACHET DAILY)
     Dates: start: 20180228
  4. FUSIDIC ACID [Concomitant]
     Active Substance: FUSIDIC ACID
     Dosage: 1 GTT DROPS, BID (1 DROP TWICE DAILY)
     Dates: start: 20180228
  5. LORATADINE. [Concomitant]
     Active Substance: LORATADINE
     Dosage: 1 DOSAGE FORM, QD (1 TABLET ONCE A DAY)
     Dates: start: 20180501

REACTIONS (1)
  - Erectile dysfunction [Recovered/Resolved]

NARRATIVE: CASE EVENT DATE: 20180508
